FAERS Safety Report 9585836 (Version 1)
Quarter: 2013Q4

REPORT INFORMATION
  Report Type: Spontaneous
  Country: TR (occurrence: None)
  Receive Date: 20131001
  Receipt Date: 20131001
  Transmission Date: 20140711
  Serious: Yes (Other)
  Sender: FDA-Public Use
  Company Number: FK201304422

PATIENT
  Sex: Female

DRUGS (3)
  1. LEUCOVORIN CALCIUM (LEUCOVORIN CALCIUM) [Suspect]
     Indication: PRODUCT USED FOR UNKNOWN INDICATION
     Route: 061
  2. OXALIPLATIN (OXALIPLATIN) [Suspect]
     Indication: PRODUCT USED FOR UNKNOWN INDICATION
     Route: 064
  3. FLUOROURACIL (FLUOROURACIL) [Suspect]
     Indication: PRODUCT USED FOR UNKNOWN INDICATION
     Route: 064

REACTIONS (5)
  - Foetal growth restriction [None]
  - Caesarean section [None]
  - Small for dates baby [None]
  - Premature baby [None]
  - Maternal drugs affecting foetus [None]
